FAERS Safety Report 19115549 (Version 3)
Quarter: 2021Q2

REPORT INFORMATION
  Report Type: Report from Study
  Country: CA (occurrence: CA)
  Receive Date: 20210409
  Receipt Date: 20210614
  Transmission Date: 20210717
  Serious: Yes (Other)
  Sender: FDA-Public Use
  Company Number: CA-OTSUKA-2021_011437

PATIENT
  Sex: Female

DRUGS (1)
  1. ASTX727 [Suspect]
     Active Substance: CEDAZURIDINE\DECITABINE
     Indication: MYELODYSPLASTIC SYNDROME
     Dosage: 135 MG (35 MG DECITABINE AND 100 MG CEDAZURIDINE) UNK
     Route: 065
     Dates: start: 20210318

REACTIONS (2)
  - Therapy interrupted [Unknown]
  - Blood count abnormal [Unknown]
